FAERS Safety Report 15954948 (Version 1)
Quarter: 2019Q1

REPORT INFORMATION
  Report Type: Spontaneous
  Country: GB (occurrence: GB)
  Receive Date: 20190213
  Receipt Date: 20190213
  Transmission Date: 20190417
  Serious: Yes (Other)
  Sender: FDA-Public Use
  Company Number: GB-SA-2019SA035485

PATIENT

DRUGS (1)
  1. LEMTRADA [Suspect]
     Active Substance: ALEMTUZUMAB
     Route: 041

REACTIONS (28)
  - Hypotension [Unknown]
  - Lethargy [Unknown]
  - Pneumocystis jirovecii pneumonia [Unknown]
  - Haemoptysis [Unknown]
  - Platelet disorder [Unknown]
  - Hyperhidrosis [Unknown]
  - Productive cough [Unknown]
  - Immunosuppression [Unknown]
  - C-reactive protein increased [Unknown]
  - Respiratory failure [Unknown]
  - Malaise [Unknown]
  - Contusion [Unknown]
  - White blood cell count decreased [Unknown]
  - Exercise tolerance decreased [Unknown]
  - Acute respiratory distress syndrome [Unknown]
  - Tachypnoea [Unknown]
  - Cytomegalovirus infection [Unknown]
  - Opportunistic infection [Unknown]
  - Dyspnoea [Unknown]
  - Oxygen saturation decreased [Unknown]
  - Tachycardia [Unknown]
  - Cytomegalovirus test positive [Unknown]
  - Lymphopenia [Unknown]
  - Rash [Unknown]
  - Pyrexia [Unknown]
  - Immune thrombocytopenic purpura [Unknown]
  - Feeling hot [Unknown]
  - Tremor [Unknown]
